FAERS Safety Report 12503830 (Version 2)
Quarter: 2017Q1

REPORT INFORMATION
  Report Type: Report from Study
  Country: BR (occurrence: BR)
  Receive Date: 20160628
  Receipt Date: 20170319
  Transmission Date: 20170428
  Serious: Yes (Hospitalization, Other)
  Sender: FDA-Public Use
  Company Number: PHHY2016BR087308

PATIENT
  Age: 51 Year
  Sex: Female
  Weight: 60 kg

DRUGS (2)
  1. GILENYA [Suspect]
     Active Substance: FINGOLIMOD HYDROCHLORIDE
     Indication: MULTIPLE SCLEROSIS
     Dosage: 0.5 MG, QD
     Route: 048
     Dates: start: 201506
  2. GILENYA [Suspect]
     Active Substance: FINGOLIMOD HYDROCHLORIDE
     Dosage: UNK
     Route: 065
     Dates: start: 201604

REACTIONS (11)
  - Blindness [Unknown]
  - Walking disability [Unknown]
  - Seizure [Recovered/Resolved]
  - Dizziness [Recovering/Resolving]
  - Pain in extremity [Recovered/Resolved]
  - Weight increased [Unknown]
  - Myocardial infarction [Unknown]
  - Malaise [Unknown]
  - Swelling [Unknown]
  - Multiple sclerosis relapse [Recovering/Resolving]
  - Hypertension [Recovered/Resolved]

NARRATIVE: CASE EVENT DATE: 201510
